FAERS Safety Report 11679182 (Version 1)
Quarter: 2015Q4

REPORT INFORMATION
  Report Type: Spontaneous
  Country: US (occurrence: US)
  Receive Date: 20151028
  Receipt Date: 20151028
  Transmission Date: 20160304
  Serious: Yes (Other)
  Sender: FDA-Public Use
  Company Number: US-ALLERGAN-1520579US

PATIENT
  Age: 62 Year
  Sex: Female
  Weight: 63.49 kg

DRUGS (2)
  1. RESTASIS [Suspect]
     Active Substance: CYCLOSPORINE
     Indication: DRY EYE
     Dosage: 2 GTT, BID
     Route: 047
     Dates: start: 20150914, end: 20151002
  2. RESTASIS [Suspect]
     Active Substance: CYCLOSPORINE
     Indication: VITAL DYE STAINING CORNEA PRESENT

REACTIONS (4)
  - Visual acuity reduced [Not Recovered/Not Resolved]
  - Iridocyclitis [Not Recovered/Not Resolved]
  - Drug hypersensitivity [Unknown]
  - Punctate keratitis [Not Recovered/Not Resolved]

NARRATIVE: CASE EVENT DATE: 201510
